FAERS Safety Report 17302381 (Version 2)
Quarter: 2020Q1

REPORT INFORMATION
  Report Type: Spontaneous
  Country: CN (occurrence: CN)
  Receive Date: 20200122
  Receipt Date: 20200313
  Transmission Date: 20200409
  Serious: Yes (Death, Other)
  Sender: FDA-Public Use
  Company Number: CN-ROCHE-2529564

PATIENT
  Age: 57 Year
  Sex: Female

DRUGS (9)
  1. CYCLOSPORINE. [Suspect]
     Active Substance: CYCLOSPORINE
     Indication: GRAFT VERSUS HOST DISEASE
     Route: 042
  2. CYTARABINE. [Concomitant]
     Active Substance: CYTARABINE
     Dosage: 4 G/M2/DAY,
     Route: 065
  3. BUSULFAN. [Concomitant]
     Active Substance: BUSULFAN
     Route: 065
  4. TACROLIMUS. [Suspect]
     Active Substance: TACROLIMUS
     Indication: ACUTE GRAFT VERSUS HOST DISEASE
     Route: 065
  5. MYCOPHENOLATE MOFETIL. [Suspect]
     Active Substance: MYCOPHENOLATE MOFETIL
     Indication: PROPHYLAXIS AGAINST GRAFT VERSUS HOST DISEASE
     Route: 065
  6. METHOTREXATE. [Suspect]
     Active Substance: METHOTREXATE
     Indication: GRAFT VERSUS HOST DISEASE
     Route: 065
  7. METHYLPREDNISOLONE. [Suspect]
     Active Substance: METHYLPREDNISOLONE
     Indication: ACUTE GRAFT VERSUS HOST DISEASE
     Route: 065
  8. GANCICLOVIR. [Suspect]
     Active Substance: GANCICLOVIR
     Indication: ANTIVIRAL PROPHYLAXIS
     Route: 042
  9. ANTITHYMOCYTE IMMUNOGLOBULIN (RABBIT) [Suspect]
     Active Substance: LAPINE T-LYMPHOCYTE IMMUNE GLOBULIN
     Indication: PROPHYLAXIS AGAINST GRAFT VERSUS HOST DISEASE
     Route: 065

REACTIONS (6)
  - Encephalitis cytomegalovirus [Unknown]
  - Drug resistance [Unknown]
  - Septic shock [Fatal]
  - Drug ineffective [Unknown]
  - Graft versus host disease [Unknown]
  - Cytomegalovirus viraemia [Unknown]
